FAERS Safety Report 6454789-0 (Version None)
Quarter: 2009Q4

REPORT INFORMATION
  Report Type: 
  Country: None (occurrence: None)
  Receive Date: 20091118
  Receipt Date: 20091105
  Transmission Date: 20100525
  Serious: Yes (Other)
  Sender: FDA-Public Use
  Company Number: TRP_06563_2009

PATIENT
  Age: 27 Year
  Sex: Female

DRUGS (2)
  1. RIBAVIRIN [Suspect]
     Indication: HEPATITIS C
     Dosage: 1000 MG, DAILY;
     Dates: start: 20050101
  2. PEGINTERFERON ALFA-2B         (PEGYLATED INTERFERON ALPHA-2B) [Suspect]
     Indication: HEPATITIS C
     Dosage: 120 MG, DAILY;
     Dates: start: 20050101

REACTIONS (2)
  - DEAFNESS NEUROSENSORY [None]
  - OTOTOXICITY [None]
